FAERS Safety Report 6835842-6 (Version None)
Quarter: 2010Q3

REPORT INFORMATION
  Report Type: 
  Country: None (occurrence: None)
  Receive Date: 20100712
  Receipt Date: 20100712
  Transmission Date: 20110219
  Serious: Yes (Other)
  Sender: FDA-Public Use
  Company Number: None

PATIENT
  Age: 70 Year
  Sex: Female
  Weight: 58.9676 kg

DRUGS (2)
  1. SPIRIVA [Suspect]
     Dosage: 1 PUFF DAILY INHAL
     Route: 055
     Dates: start: 20090301, end: 20090301
  2. SPIRIVA [Suspect]
     Dosage: 1 PUFF DAILY INHAL
     Route: 055
     Dates: start: 20090101, end: 20091101

REACTIONS (2)
  - COUGH [None]
  - DYSPNOEA [None]
